FAERS Safety Report 9359185 (Version 1)
Quarter: 2013Q2

REPORT INFORMATION
  Report Type: Spontaneous
  Country: JP (occurrence: JP)
  Receive Date: 20130620
  Receipt Date: 20130620
  Transmission Date: 20140414
  Serious: Yes (Disabling)
  Sender: FDA-Public Use
  Company Number: JP-ASTRAZENECA-2013SE46927

PATIENT
  Age: 62 Year
  Sex: Male

DRUGS (3)
  1. SEROQUEL [Suspect]
     Route: 048
     Dates: start: 200804, end: 200805
  2. SEROQUEL [Suspect]
     Route: 048
     Dates: start: 200805
  3. GRAMALIL [Suspect]
     Route: 048
     Dates: start: 200601, end: 200611

REACTIONS (3)
  - Mastication disorder [Unknown]
  - Dysphagia [Unknown]
  - Tardive dyskinesia [Unknown]
